FAERS Safety Report 14703161 (Version 1)
Quarter: 2018Q2

REPORT INFORMATION
  Report Type: Spontaneous
  Country: US (occurrence: US)
  Receive Date: 20180402
  Receipt Date: 20180402
  Transmission Date: 20180711
  Serious: Yes (Hospitalization)
  Sender: FDA-Public Use
  Company Number: US-PROCTER_AND_GAMBLE-GS18035573

PATIENT
  Age: 84 Year
  Sex: Female

DRUGS (2)
  1. CREST COMPLETE MULTI BENEFIT WHITENING PLUS SCOPE OUTLAST [Suspect]
     Active Substance: SODIUM FLUORIDE
     Dosage: 1/2 INCH LONG, 2 /DAY
     Route: 002
  2. CREST [Suspect]
     Active Substance: SODIUM FLUORIDE
     Dosage: 1/2 INCH LONG, 2 /DAY
     Route: 002

REACTIONS (2)
  - Autoimmune disorder [Not Recovered/Not Resolved]
  - Sjogren^s syndrome [Not Recovered/Not Resolved]

NARRATIVE: CASE EVENT DATE: 201712
